FAERS Safety Report 12038369 (Version 1)
Quarter: 2016Q1

REPORT INFORMATION
  Report Type: Spontaneous
  Country: US (occurrence: None)
  Receive Date: 20160205
  Receipt Date: 20160205
  Transmission Date: 20160526
  Serious: Yes (Disabling)
  Sender: FDA-Public Use
  Company Number: None

PATIENT
  Age: 79 Year
  Sex: Male
  Weight: 88.45 kg

DRUGS (1)
  1. CIPRO [Suspect]
     Active Substance: CIPROFLOXACIN HYDROCHLORIDE
     Indication: RENAL PAIN
     Dosage: 500 MG TABLET  2 PER DAY
     Dates: start: 20150904, end: 20150909

REACTIONS (4)
  - Pain in extremity [None]
  - Fall [None]
  - Musculoskeletal pain [None]
  - Arthropathy [None]

NARRATIVE: CASE EVENT DATE: 20150904
